FAERS Safety Report 21558864 (Version 1)
Quarter: 2022Q4

REPORT INFORMATION
  Report Type: Spontaneous
  Country: US (occurrence: None)
  Receive Date: 20221103
  Receipt Date: 20221103
  Transmission Date: 20230112
  Serious: Yes (Other)
  Sender: FDA-Public Use
  Company Number: None

PATIENT
  Sex: Female

DRUGS (1)
  1. ZOLEDRONIC ACID [Suspect]
     Active Substance: ZOLEDRONIC ACID
     Indication: Senile osteoporosis
     Dosage: 5 MG/100ML??INFUSE INTRAVENOUSLY ONCE YEARLY
     Route: 042
     Dates: start: 20200911

REACTIONS (1)
  - Hernia repair [None]
